FAERS Safety Report 9530246 (Version 1)
Quarter: 2013Q3

REPORT INFORMATION
  Report Type: Spontaneous
  Country: PL (occurrence: PL)
  Receive Date: 20130917
  Receipt Date: 20130917
  Transmission Date: 20140515
  Serious: Yes (Life-Threatening, Hospitalization, Other)
  Sender: FDA-Public Use
  Company Number: PL-WATSON-2013-15819

PATIENT
  Age: 49 Year
  Sex: Male

DRUGS (6)
  1. DOXEPIN (WATSON LABORATORIES) [Suspect]
     Indication: SUICIDE ATTEMPT
     Dosage: 4660 MG, SINGLE (150 25 MG TABLETS AND 91 10 MG TABLETS)
     Route: 048
  2. LUMINAL /00023201/ [Suspect]
     Indication: SUICIDE ATTEMPT
     Dosage: 19 TABLETS
     Route: 048
  3. LORAFEN [Suspect]
     Indication: SUICIDE ATTEMPT
     Dosage: 50 TABLETS
     Route: 048
  4. LORAFEN [Suspect]
     Indication: INSOMNIA
  5. VALIUM /00017001/ [Suspect]
     Indication: SUICIDE ATTEMPT
     Dosage: UNKNOWN
     Route: 065
  6. TRAMAL [Concomitant]
     Indication: BACK PAIN
     Dosage: UNKNOWN
     Route: 065

REACTIONS (9)
  - Coma [Recovering/Resolving]
  - Respiratory failure [Recovering/Resolving]
  - Respiratory acidosis [Recovering/Resolving]
  - Pupils unequal [Recovered/Resolved]
  - Sinus tachycardia [Recovered/Resolved]
  - Conduction disorder [Recovered/Resolved]
  - Leukocytosis [Recovered/Resolved]
  - Intentional overdose [Recovering/Resolving]
  - Suicide attempt [Recovering/Resolving]
